FAERS Safety Report 5151246-9 (Version None)
Quarter: 2006Q4

REPORT INFORMATION
  Report Type: 
  Country: None (occurrence: None)
  Receive Date: 20061110
  Receipt Date: 20061110
  Transmission Date: 20070319
  Serious: No
  Sender: FDA-Public Use
  Company Number: None

PATIENT
  Sex: Male
  Weight: 83.9154 kg

DRUGS (1)
  1. LORATADINE [Suspect]
     Indication: HYPERSENSITIVITY
     Dosage: 10 MG 1/DAY PO
     Route: 048
     Dates: start: 20060301, end: 20060501

REACTIONS (3)
  - CONSTIPATION [None]
  - MACULAR HOLE [None]
  - VISION BLURRED [None]
